FAERS Safety Report 5209897-9 (Version None)
Quarter: 2006Q4

REPORT INFORMATION
  Report Type: 
  Country: None (occurrence: None)
  Receive Date: 20061130
  Receipt Date: 20051019
  Transmission Date: 20070319
  Serious: Yes (Other)
  Sender: FDA-Public Use
  Company Number: 2005145766

PATIENT
  Age: 77 Year
  Sex: Male

DRUGS (4)
  1. ZYVOX [Suspect]
     Indication: PHLEBITIS
     Dosage: 1200 MG (600 MG,BID INTERVAL: TWICE DAILY),ORAL
     Route: 048
     Dates: start: 20050901
  2. ZYVOX [Suspect]
     Indication: STAPHYLOCOCCAL INFECTION
     Dosage: 1200 MG (600 MG,BID INTERVAL: TWICE DAILY),ORAL
     Route: 048
     Dates: start: 20050901
  3. ALL OTHER THERAPEUTIC PRODUCTS (ALL OTHER THERAPEUTIC PRODUCTS) [Concomitant]
  4. VANCOMYCIN [Concomitant]

REACTIONS (5)
  - ABDOMINAL PAIN [None]
  - COLITIS [None]
  - DIARRHOEA [None]
  - LEUKOCYTOSIS [None]
  - PANCYTOPENIA [None]
